FAERS Safety Report 16729854 (Version 1)
Quarter: 2019Q3

REPORT INFORMATION
  Report Type: Spontaneous
  Country: US (occurrence: US)
  Receive Date: 20190705
  Receipt Date: 20190705
  Transmission Date: 20191005
  Serious: No
  Sender: FDA-Public Use
  Company Number: None

PATIENT
  Age: 60 Year
  Sex: Male

DRUGS (2)
  1. XARELTO [Concomitant]
     Active Substance: RIVAROXABAN
  2. ORENCIA [Suspect]
     Active Substance: ABATACEPT
     Dates: start: 201906

REACTIONS (1)
  - Alopecia [None]

NARRATIVE: CASE EVENT DATE: 20180705
